FAERS Safety Report 13604819 (Version 1)
Quarter: 2017Q2

REPORT INFORMATION
  Report Type: Spontaneous
  Country: None (occurrence: US)
  Receive Date: 20170601
  Receipt Date: 20170601
  Transmission Date: 20170830
  Serious: Yes (Hospitalization)
  Sender: FDA-Public Use
  Company Number: None

PATIENT
  Sex: Male

DRUGS (1)
  1. SUTENT [Suspect]
     Active Substance: SUNITINIB MALATE
     Indication: NEOPLASM MALIGNANT
     Dosage: 50 MG DAILY FOR 28 DAYS ON AND 14 DAYS OFF MY MOUTH
     Route: 048
     Dates: start: 20170507, end: 20170526

REACTIONS (3)
  - Purpura [None]
  - Thrombocytopenia [None]
  - Rash [None]
